FAERS Safety Report 8067705-5 (Version None)
Quarter: 2012Q1

REPORT INFORMATION
  Report Type: 
  Country: None (occurrence: None)
  Receive Date: 20120124
  Receipt Date: 20120120
  Transmission Date: 20120608
  Serious: Yes (Hospitalization)
  Sender: FDA-Public Use
  Company Number: JP-PFIZER INC-2011310871

PATIENT

DRUGS (2)
  1. ALDACTONE [Suspect]
     Indication: CARDIAC FAILURE
     Dosage: 50 MG DAILY
     Route: 048
  2. ALDACTONE [Suspect]
     Dosage: 100 MG DAILY
     Route: 048

REACTIONS (1)
  - PLATELET COUNT DECREASED [None]
